FAERS Safety Report 5767519-2 (Version None)
Quarter: 2008Q2

REPORT INFORMATION
  Report Type: 
  Country: None (occurrence: None)
  Receive Date: 20080612
  Receipt Date: 20080530
  Transmission Date: 20081010
  Serious: Yes (Other)
  Sender: FDA-Public Use
  Company Number: US-JNJFOC-20080203772

PATIENT
  Sex: Female
  Weight: 63.5 kg

DRUGS (16)
  1. DURAGESIC-100 [Suspect]
     Route: 062
  2. DURAGESIC-100 [Suspect]
     Route: 062
  3. DURAGESIC-100 [Suspect]
     Indication: ARTHRALGIA
     Route: 062
  4. FENTANYL TRANSDERMAL SYSTEM [Suspect]
     Indication: ARTHRALGIA
     Route: 062
  5. TIMOPTIC [Concomitant]
     Indication: MACULAR DEGENERATION
     Route: 047
  6. SYNTHROID [Concomitant]
     Indication: THYROID DISORDER
     Route: 048
  7. PREVACID [Concomitant]
     Indication: HIATUS HERNIA
     Route: 048
  8. CARDIZEM [Concomitant]
     Indication: ANGINA PECTORIS
     Dosage: 180 MG AND 90 MG
     Route: 048
  9. XANAX [Concomitant]
     Indication: ANXIETY
     Route: 048
  10. CELEBREX [Concomitant]
     Indication: OSTEOPOROSIS
     Route: 048
  11. DIOVAN [Concomitant]
     Indication: BLOOD PRESSURE
     Route: 048
  12. ZOCOR [Concomitant]
     Indication: BLOOD CHOLESTEROL INCREASED
     Route: 048
  13. RESTORIL [Concomitant]
     Indication: SLEEP DISORDER
     Route: 048
  14. NITROGLYCERIN [Concomitant]
     Indication: PALPITATIONS
     Route: 060
  15. CALTRATE [Concomitant]
     Route: 048
  16. COUMADIN [Concomitant]
     Indication: THROMBOSIS
     Route: 048

REACTIONS (8)
  - APPLICATION SITE ERYTHEMA [None]
  - DRUG INEFFECTIVE [None]
  - FATIGUE [None]
  - GLAUCOMA [None]
  - HALLUCINATION [None]
  - MACULAR DEGENERATION [None]
  - OSTEOARTHRITIS [None]
  - OSTEOPOROSIS [None]
